FAERS Safety Report 5736668-7 (Version None)
Quarter: 2008Q2

REPORT INFORMATION
  Report Type: 
  Country: None (occurrence: None)
  Receive Date: 20080513
  Receipt Date: 20080502
  Transmission Date: 20081010
  Serious: Yes (Hospitalization, Other)
  Sender: FDA-Public Use
  Company Number: IL-PFIZER INC-2008018714

PATIENT
  Age: 70 Year
  Sex: Male

DRUGS (2)
  1. SILDENAFIL CITRATE [Suspect]
     Dosage: DAILY DOSE:50MG
  2. ENALAPRIL MALEATE [Concomitant]
     Dosage: DAILY DOSE:10MG

REACTIONS (2)
  - GLOBAL AMNESIA [None]
  - HYPERTENSION [None]
